FAERS Safety Report 12461952 (Version 1)
Quarter: 2016Q2

REPORT INFORMATION
  Report Type: Spontaneous
  Country: CA (occurrence: CA)
  Receive Date: 20160613
  Receipt Date: 20160613
  Transmission Date: 20160815
  Serious: Yes (Hospitalization, Other)
  Sender: FDA-Public Use
  Company Number: CA-HQ SPECIALTY-CA-2016INT000364

PATIENT
  Age: 44 Year
  Sex: Female

DRUGS (6)
  1. XELJANZ [Suspect]
     Active Substance: TOFACITINIB CITRATE
     Dosage: 10 MG (5 MG, 2 IN 1 D)
     Route: 048
     Dates: start: 20160302
  2. XELJANZ [Suspect]
     Active Substance: TOFACITINIB CITRATE
     Indication: RHEUMATOID ARTHRITIS
     Dosage: 5 MG (5 MG, 1 IN 1 D)
     Dates: start: 20151222, end: 201601
  3. PREDNISONE. [Concomitant]
     Active Substance: PREDNISONE
     Indication: RHEUMATOID ARTHRITIS
     Dosage: UNK
     Dates: end: 201603
  4. PREDNISONE. [Concomitant]
     Active Substance: PREDNISONE
     Indication: ARTHRALGIA
  5. SAXENDA [Concomitant]
     Active Substance: LIRAGLUTIDE
     Indication: OBESITY
     Dosage: UNK
  6. METHOTREXATE SODIUM. [Suspect]
     Active Substance: METHOTREXATE SODIUM
     Indication: RHEUMATOID ARTHRITIS
     Dosage: 2.8571 MG (20 MG, 1 IN 1 W)
     Route: 048

REACTIONS (8)
  - Malaise [Not Recovered/Not Resolved]
  - Renal impairment [Recovering/Resolving]
  - Fatigue [Not Recovered/Not Resolved]
  - Limb discomfort [Unknown]
  - Decreased appetite [Not Recovered/Not Resolved]
  - Cellulitis [Not Recovered/Not Resolved]
  - Dehydration [Not Recovered/Not Resolved]
  - Arthropathy [Unknown]

NARRATIVE: CASE EVENT DATE: 201603
